FAERS Safety Report 10674953 (Version 1)
Quarter: 2014Q4

REPORT INFORMATION
  Report Type: Spontaneous
  Country: US (occurrence: US)
  Receive Date: 20141224
  Receipt Date: 20141224
  Transmission Date: 20150529
  Serious: No
  Sender: FDA-Public Use
  Company Number: US-GLAXOSMITHKLINE-A1054302A

PATIENT

DRUGS (6)
  1. NASONEX [Suspect]
     Active Substance: MOMETASONE FUROATE
     Indication: RHINITIS ALLERGIC
     Route: 045
     Dates: start: 201306
  2. PRAVASTATIN [Concomitant]
     Active Substance: PRAVASTATIN\PRAVASTATIN SODIUM
  3. LOSARTAN [Concomitant]
     Active Substance: LOSARTAN
  4. ZETIA [Concomitant]
     Active Substance: EZETIMIBE
  5. TAMSULOSIN [Concomitant]
     Active Substance: TAMSULOSIN
  6. FLUTICASONE PROPIONATE NASAL SPRAY [Suspect]
     Active Substance: FLUTICASONE PROPIONATE
     Indication: RHINITIS ALLERGIC
     Route: 045

REACTIONS (2)
  - Oropharyngeal pain [Recovered/Resolved]
  - Sinusitis [Recovered/Resolved]
